FAERS Safety Report 17400890 (Version 2)
Quarter: 2020Q1

REPORT INFORMATION
  Report Type: Spontaneous
  Country: ES (occurrence: ES)
  Receive Date: 20200211
  Receipt Date: 20200219
  Transmission Date: 20200409
  Serious: Yes (Other)
  Sender: FDA-Public Use
  Company Number: ES-TEVA-2020-ES-1183013

PATIENT
  Age: 75 Year
  Sex: Male

DRUGS (3)
  1. ATEZOLIZUMAB. [Suspect]
     Active Substance: ATEZOLIZUMAB
     Indication: TRANSITIONAL CELL CARCINOMA URETHRA
     Dosage: RECEIVED FIRST INFUSION 12 DAYS PRIOR TO THE ONSET OF SYMPTOMS
     Route: 065
  2. CISPLATIN. [Suspect]
     Active Substance: CISPLATIN
     Indication: TRANSITIONAL CELL CARCINOMA URETHRA
     Dosage: ON DAY 1 OF EVERY 21-DAY CYCLE
     Route: 065
  3. GEMCITABINE. [Suspect]
     Active Substance: GEMCITABINE
     Indication: TRANSITIONAL CELL CARCINOMA URETHRA
     Dosage: ON DAYS 1, 8 AND 21 OF EVERY 21-DAY CYCLE
     Route: 065

REACTIONS (5)
  - Vomiting [Unknown]
  - Renal injury [Unknown]
  - Psoriasis [Recovered/Resolved]
  - Therapy non-responder [Unknown]
  - Asthenia [Unknown]
